FAERS Safety Report 4927181-5 (Version None)
Quarter: 2006Q1

REPORT INFORMATION
  Report Type: 
  Country: None (occurrence: None)
  Receive Date: 20060228
  Receipt Date: 20000728
  Transmission Date: 20060701
  Serious: Yes (Hospitalization)
  Sender: FDA-Public Use
  Company Number: JP-SOLVAY-00300005300

PATIENT
  Age: 4469 Day
  Sex: Male

DRUGS (11)
  1. PANVITAN [Concomitant]
     Indication: CYSTIC FIBROSIS PANCREATIC
     Dosage: DAILY DOSE: 1 G. FREQUENCY: 3 TIMES A DAY
     Route: 048
  2. CREON [Suspect]
     Indication: CYSTIC FIBROSIS PANCREATIC
     Dosage: DAILY DOSE: 4 G. FREQUENCY: 3 TIMES A DAY
     Route: 048
     Dates: start: 19980316, end: 20001113
  3. HYMERON KI [Concomitant]
     Indication: CYSTIC FIBROSIS PANCREATIC
     Dosage: DAILY DOSE: 2 MG. FREQUENCY: 3 TIMES A DAY
     Route: 048
  4. JUVELA [Concomitant]
     Indication: CYSTIC FIBROSIS PANCREATIC
     Dosage: DAILY DOSE: 300 MG. FREQUENCY: 3 TIMES A DAY
     Route: 048
  5. BISOLVON [Concomitant]
     Indication: CYSTIC FIBROSIS PANCREATIC
     Dosage: DAILY DOSE: 8 MG. FREQUENCY: 3 TIMES A DAY
     Route: 048
  6. ASVERIN [Concomitant]
     Indication: CYSTIC FIBROSIS PANCREATIC
     Dosage: DAILY DOSE: 30 MG. FREQUENCY: 3 TIMES A DAY
     Route: 048
  7. MUCODYNE [Concomitant]
     Indication: CYSTIC FIBROSIS PANCREATIC
     Dosage: DAILY DOSE: 900 MG. FREQUENCY: 3 TIMES A DAY
     Route: 048
  8. ALFAROL [Concomitant]
     Indication: CYSTIC FIBROSIS PANCREATIC
     Dosage: DAILY DOSE: 0.5 MCG. FREQUENCY: UNKNOWN
     Route: 048
  9. ENSURE [Concomitant]
     Indication: CYSTIC FIBROSIS PANCREATIC
     Dosage: DAILY DOSE: UNK. FREQUENCY:UNKNOWN
     Route: 048
  10. ELENTAL-P [Concomitant]
     Indication: CYSTIC FIBROSIS PANCREATIC
     Dosage: DAILY DOSE: UNK. FREQUENCY:UNKNOWN
     Route: 048
  11. BERIZYM [Concomitant]
     Indication: CYSTIC FIBROSIS PANCREATIC
     Dosage: DAILY DOSE: 2.5 G. FREQUENCY: AS NEEDED
     Route: 048

REACTIONS (1)
  - PNEUMONIA [None]
